FAERS Safety Report 12081553 (Version 2)
Quarter: 2017Q2

REPORT INFORMATION
  Report Type: Report from Study
  Country: US (occurrence: US)
  Receive Date: 20160216
  Receipt Date: 20170504
  Transmission Date: 20170829
  Serious: Yes (Hospitalization)
  Sender: FDA-Public Use
  Company Number: US-ACTELION-A-NJ2016-131407

PATIENT
  Age: 76 Year
  Sex: Female
  Weight: 136.5 kg

DRUGS (1)
  1. TRACLEER [Suspect]
     Active Substance: BOSENTAN
     Indication: PULMONARY ARTERIAL HYPERTENSION
     Dosage: 125 MG, BID
     Route: 048

REACTIONS (6)
  - Urinary tract infection [Unknown]
  - Respiratory distress [Unknown]
  - Bronchitis [Unknown]
  - Pneumonia [Unknown]
  - Fluid retention [Unknown]
  - Gout [Unknown]
